FAERS Safety Report 8963921 (Version 2)
Quarter: 2013Q1

REPORT INFORMATION
  Report Type: Spontaneous
  Country: US (occurrence: US)
  Receive Date: 20121214
  Receipt Date: 20130215
  Transmission Date: 20140127
  Serious: Yes (Hospitalization, Other)
  Sender: FDA-Public Use
  Company Number: US-BAYER-2012-129954

PATIENT
  Age: 21 Year
  Sex: Female
  Weight: 79.37 kg

DRUGS (9)
  1. OCELLA [Suspect]
     Indication: ACNE
     Dosage: UNK
     Dates: start: 2009, end: 201001
  2. OCELLA [Suspect]
     Indication: MENSTRUAL CYCLE MANAGEMENT
     Dosage: UNK
     Dates: start: 201108, end: 201201
  3. RETIN-A [Concomitant]
     Dosage: UNK %, UNK
     Route: 061
  4. SPIRONOLACTONE [Concomitant]
     Route: 048
  5. CITALOPRAM [Concomitant]
     Route: 048
  6. IBUPROFEN [Concomitant]
     Route: 048
  7. CELEXA [Concomitant]
  8. ALDACTONE [SPIRONOLACTONE] [Concomitant]
  9. VITAMINS WITH MINERALS [Concomitant]

REACTIONS (3)
  - Pulmonary embolism [Recovered/Resolved]
  - Asthma [None]
  - Dyspnoea [Recovered/Resolved]
